FAERS Safety Report 17388678 (Version 1)
Quarter: 2020Q1

REPORT INFORMATION
  Report Type: Spontaneous
  Country: US (occurrence: US)
  Receive Date: 20200207
  Receipt Date: 20200207
  Transmission Date: 20200409
  Serious: No
  Sender: FDA-Public Use
  Company Number: US-BIOGEN-2019BI00811278

PATIENT
  Sex: Male

DRUGS (2)
  1. TECFIDERA [Suspect]
     Active Substance: DIMETHYL FUMARATE
     Indication: MULTIPLE SCLEROSIS
     Route: 048
     Dates: start: 201406
  2. TECFIDERA [Suspect]
     Active Substance: DIMETHYL FUMARATE
     Route: 048

REACTIONS (8)
  - Snoring [Unknown]
  - Dyspnoea [Unknown]
  - Sleep disorder [Unknown]
  - Back pain [Unknown]
  - Weight decreased [Unknown]
  - Oedema peripheral [Unknown]
  - Constipation [Unknown]
  - Multiple sclerosis relapse [Unknown]
